FAERS Safety Report 11004539 (Version 1)
Quarter: 2015Q2

REPORT INFORMATION
  Report Type: Spontaneous
  Country: US (occurrence: US)
  Receive Date: 20150409
  Receipt Date: 20150409
  Transmission Date: 20150821
  Serious: Yes (Other)
  Sender: FDA-Public Use
  Company Number: US-009507513-1504USA002949

PATIENT
  Sex: Female

DRUGS (1)
  1. FOSAMAX [Suspect]
     Active Substance: ALENDRONATE SODIUM
     Indication: OSTEOPOROSIS
     Dosage: UNK
     Route: 048
     Dates: start: 199703, end: 201301

REACTIONS (5)
  - Surgery [Unknown]
  - Device breakage [Unknown]
  - Internal fixation of fracture [Unknown]
  - Femur fracture [Not Recovered/Not Resolved]
  - Removal of internal fixation [Unknown]

NARRATIVE: CASE EVENT DATE: 20130127
